FAERS Safety Report 7779288-5 (Version None)
Quarter: 2011Q3

REPORT INFORMATION
  Report Type: 
  Country: None (occurrence: None)
  Receive Date: 20110926
  Receipt Date: 20110922
  Transmission Date: 20111222
  Serious: Yes (Death)
  Sender: FDA-Public Use
  Company Number: US-ASTRAZENECA-2011SE50904

PATIENT
  Age: 45 Year
  Sex: Male

DRUGS (7)
  1. MORPHINE SULFATE [Concomitant]
  2. PINK MAGIC [Concomitant]
  3. SENNA LAX [Concomitant]
  4. OXYCONTIN [Concomitant]
  5. VANDETANIB [Suspect]
     Indication: THYROID CANCER
     Route: 048
     Dates: start: 20110414
  6. PREDNISONE [Concomitant]
  7. LACTULOSE [Concomitant]
     Dosage: 10 GM/ 15 ML AS REQUIRED

REACTIONS (2)
  - MUSCLE SPASMS [None]
  - DEATH [None]
